FAERS Safety Report 9167688 (Version 1)
Quarter: 2013Q1

REPORT INFORMATION
  Report Type: Spontaneous
  Country: US (occurrence: US)
  Receive Date: 20130318
  Receipt Date: 20130318
  Transmission Date: 20140127
  Serious: Yes (Other)
  Sender: FDA-Public Use
  Company Number: US-BAYER-2013-031178

PATIENT
  Age: 35 Year
  Sex: Male

DRUGS (3)
  1. ALEVE CAPLET/TABLET,MIDOL EXTENDED RELIEF CAPLET [Suspect]
  2. RELAFEN [Concomitant]
  3. BENTYL [Concomitant]

REACTIONS (2)
  - Colitis ulcerative [None]
  - Gastrointestinal disorder [None]
